FAERS Safety Report 9640460 (Version 1)
Quarter: 2013Q4

REPORT INFORMATION
  Report Type: Spontaneous
  Country: US (occurrence: None)
  Receive Date: 20131021
  Receipt Date: 20131021
  Transmission Date: 20140711
  Serious: Yes (Other)
  Sender: FDA-Public Use
  Company Number: 2013P1020076

PATIENT
  Age: 54 Year
  Sex: Female
  Weight: 52.16 kg

DRUGS (11)
  1. BUTALBITAL W/CAFFEINE/CODEINE/PARACETAMOL [Suspect]
     Dosage: Q4H; PO
     Route: 048
  2. BUTALBITAL W/CAFFEINE/CODEINE/PARACETAMOL [Suspect]
     Indication: HEADACHE
     Dosage: Q4H; PO
     Route: 048
  3. BUTALBITAL W/CAFFEINE/CODEINE/PARACETAMOL [Suspect]
     Indication: BACK PAIN
     Dosage: Q4H; PO
     Route: 048
  4. BUTALBITAL W/CAFFEINE/CODEINE/PARACETAMOL [Suspect]
     Dosage: Q4H; PO
     Route: 048
  5. BUTALBITAL W/CAFFEINE/CODEINE/PARACETAMOL [Suspect]
     Indication: BACK PAIN
     Dosage: Q4H; PO
     Route: 048
  6. BUTALBITAL W/CAFFEINE/CODEINE/PARACETAMOL [Suspect]
     Indication: HEADACHE
     Dosage: Q4H; PO
     Route: 048
  7. BUTALBITAL W/CAFFEINE/CODEINE/PARACETAMOL [Suspect]
     Dosage: Q4H; PO
     Route: 048
  8. BUTALBITAL W/CAFFEINE/CODEINE/PARACETAMOL [Suspect]
     Indication: HEADACHE
     Dosage: Q4H; PO
     Route: 048
  9. BUTALBITAL W/CAFFEINE/CODEINE/PARACETAMOL [Suspect]
     Indication: BACK PAIN
     Dosage: Q4H; PO
     Route: 048
  10. ZOLOFT [Concomitant]
  11. IMITREX [Concomitant]

REACTIONS (4)
  - Fatigue [None]
  - Asthenia [None]
  - Drug ineffective [None]
  - Product substitution issue [None]
